FAERS Safety Report 5113485-2 (Version None)
Quarter: 2006Q3

REPORT INFORMATION
  Report Type: 
  Country: None (occurrence: None)
  Receive Date: 20060921
  Receipt Date: 20060921
  Transmission Date: 20061208
  Serious: Yes (Life-Threatening, Hospitalization)
  Sender: FDA-Public Use
  Company Number: None

PATIENT
  Age: 18 Year
  Sex: Male
  Weight: 79 kg

DRUGS (3)
  1. PEGASPARAGINASE - ONCASPAR - 750 INTERNATIONAL ENZON UNITS / ML [Suspect]
     Indication: ACUTE LYMPHOCYTIC LEUKAEMIA
     Dosage: 4650 INTERNATIONA UNITS ONCE IM
     Route: 030
     Dates: start: 20060817, end: 20060817
  2. PEGASPARAGINASE - ONCASPAR - 750 INTERNATIONAL ENZON UNITS / ML [Suspect]
     Indication: ACUTE LYMPHOCYTIC LEUKAEMIA
     Dosage: 4650 INTERNATIONA UNITS ONCE IM
     Route: 030
     Dates: start: 20060919, end: 20060919
  3. VINCRISTINE [Concomitant]

REACTIONS (1)
  - ANAPHYLACTIC REACTION [None]
